FAERS Safety Report 19132236 (Version 1)
Quarter: 2021Q2

REPORT INFORMATION
  Report Type: Other
  Country: ES (occurrence: ES)
  Receive Date: 20210414
  Receipt Date: 20210414
  Transmission Date: 20210717
  Serious: Yes (Death)
  Sender: FDA-Public Use
  Company Number: ES-ROCHE-2810123

PATIENT
  Age: 82 Year
  Sex: Female

DRUGS (2)
  1. PREDNISONE. [Suspect]
     Active Substance: PREDNISONE
     Indication: PRODUCT USED FOR UNKNOWN INDICATION
     Dosage: 3?6 WEEKS
     Route: 065
  2. RITUXIMAB. [Suspect]
     Active Substance: RITUXIMAB
     Indication: PRODUCT USED FOR UNKNOWN INDICATION
     Dosage: TWO INFUSIONS, 1000 MG EACH, ADMINISTERED 14 DAYS APART)
     Route: 042

REACTIONS (1)
  - COVID-19 pneumonia [Fatal]
